FAERS Safety Report 4262920-0 (Version None)
Quarter: 2004Q1

REPORT INFORMATION
  Report Type: 
  Country: None (occurrence: None)
  Receive Date: 20040102
  Receipt Date: 20040102
  Transmission Date: 20041129
  Serious: Yes (Disabling)
  Sender: FDA-Public Use
  Company Number: None

PATIENT
  Sex: Female
  Weight: 57.6068 kg

DRUGS (1)
  1. BEXTRA [Suspect]
     Indication: SPINAL FRACTURE
     Dosage: 1 TAB DAILY
     Dates: start: 20031210, end: 20031231

REACTIONS (5)
  - BREAST ENGORGEMENT [None]
  - BREAST MASS [None]
  - BREAST PAIN [None]
  - DYSPEPSIA [None]
  - HYPERTROPHY BREAST [None]
